FAERS Safety Report 9206219 (Version 1)
Quarter: 2013Q2

REPORT INFORMATION
  Report Type: Spontaneous
  Country: US (occurrence: US)
  Receive Date: 20130403
  Receipt Date: 20130403
  Transmission Date: 20140414
  Serious: No
  Sender: FDA-Public Use
  Company Number: US-PFIZER INC-2013105012

PATIENT
  Sex: Female

DRUGS (4)
  1. PREPARATION H [Suspect]
     Indication: SKIN IRRITATION
     Dosage: UNK
  2. PREPARATION H [Suspect]
     Indication: HAEMORRHOIDS
  3. PREPARATION H [Suspect]
     Indication: PAIN
  4. HYDROCORTISONE ACETATE [Suspect]
     Indication: PRURITUS
     Dosage: UNK

REACTIONS (1)
  - Drug ineffective [Unknown]
